FAERS Safety Report 21101213 (Version 1)
Quarter: 2022Q3

REPORT INFORMATION
  Report Type: Spontaneous
  Country: US (occurrence: None)
  Receive Date: 20220719
  Receipt Date: 20220719
  Transmission Date: 20221027
  Serious: No
  Sender: FDA-Public Use
  Company Number: None

PATIENT
  Age: 44 Year
  Sex: Female
  Weight: 56.25 kg

DRUGS (1)
  1. KETAMINE [Suspect]
     Active Substance: KETAMINE
     Indication: Anxiety
     Dosage: OTHER QUANTITY : 4 CAPSULE(S);?FREQUENCY : AS NEEDED;?
     Route: 060
     Dates: start: 20220716, end: 20220716

REACTIONS (5)
  - Hyperthyroidism [None]
  - Tachycardia [None]
  - Anxiety [None]
  - Insomnia [None]
  - Contraindicated product administered [None]

NARRATIVE: CASE EVENT DATE: 20220716
